FAERS Safety Report 9106057 (Version 1)
Quarter: 2013Q1

REPORT INFORMATION
  Report Type: Spontaneous
  Country: CA (occurrence: CA)
  Receive Date: 20130220
  Receipt Date: 20130220
  Transmission Date: 20140127
  Serious: Yes (Death, Other)
  Sender: FDA-Public Use
  Company Number: CA-ELI_LILLY_AND_COMPANY-CA201302004021

PATIENT
  Age: 81 Year
  Sex: Male

DRUGS (20)
  1. FORTEO [Suspect]
     Indication: OSTEOPOROSIS
     Dosage: 20 UG, QD
     Route: 058
     Dates: start: 20111001, end: 20130210
  2. LEFLUNOMIDE [Concomitant]
  3. DETROL [Concomitant]
  4. PLAQUENIL [Concomitant]
  5. ADVAIR [Concomitant]
  6. VENTOLIN                                /SCH/ [Concomitant]
  7. RABEPRAZOLE [Concomitant]
  8. AMITRIPTYLINE [Concomitant]
  9. PREDNISONE [Concomitant]
  10. MELOXICAM [Concomitant]
  11. NOVASEN [Concomitant]
  12. CARBAMAZEPINE [Concomitant]
  13. TYLENOL W/CODEINE NO. 3 [Concomitant]
  14. CALCIUM [Concomitant]
  15. VITAMIN D [Concomitant]
  16. VITAMIN B COMPLEX [Concomitant]
  17. VITAMIN C [Concomitant]
  18. DOCUSATE [Concomitant]
  19. SENNA [Concomitant]
  20. BENADRYL [Concomitant]

REACTIONS (1)
  - Myocardial infarction [Fatal]
